FAERS Safety Report 7215104-8 (Version None)
Quarter: 2011Q1

REPORT INFORMATION
  Report Type: 
  Country: None (occurrence: None)
  Receive Date: 20110107
  Receipt Date: 20100824
  Transmission Date: 20110831
  Serious: No
  Sender: FDA-Public Use
  Company Number: A0877685A

PATIENT
  Age: 37 Year
  Sex: Female

DRUGS (4)
  1. NIACIN [Concomitant]
  2. LOVAZA [Suspect]
     Route: 048
     Dates: start: 20080101, end: 20080801
  3. TRICOR [Concomitant]
  4. CRESTOR [Concomitant]

REACTIONS (1)
  - DRUG INEFFECTIVE [None]
